FAERS Safety Report 9452264 (Version 1)
Quarter: 2013Q3

REPORT INFORMATION
  Report Type: Other
  Country: NL (occurrence: NL)
  Receive Date: 20130812
  Receipt Date: 20130812
  Transmission Date: 20140515
  Serious: Yes (Death)
  Sender: FDA-Public Use
  Company Number: NL-BRISTOL-MYERS SQUIBB COMPANY-19151224

PATIENT
  Age: 56 Year
  Sex: Male

DRUGS (4)
  1. PACLITAXEL [Suspect]
  2. ASPIRIN [Suspect]
  3. CLOPIDOGREL BISULFATE [Suspect]
  4. HEPARIN [Suspect]

REACTIONS (1)
  - Thrombosis in device [Fatal]
